FAERS Safety Report 6300808-1 (Version None)
Quarter: 2009Q3

REPORT INFORMATION
  Report Type: 
  Country: None (occurrence: None)
  Receive Date: 20090807
  Receipt Date: 20090803
  Transmission Date: 20100115
  Serious: Yes (Life-Threatening, Hospitalization, Disabling, Other)
  Sender: FDA-Public Use
  Company Number: FR-BRISTOL-MYERS SQUIBB COMPANY-14726624

PATIENT
  Age: 55 Year
  Sex: Female
  Weight: 102 kg

DRUGS (4)
  1. COUMADIN [Suspect]
     Route: 048
     Dates: start: 20080301, end: 20080401
  2. KALETRA [Interacting]
     Route: 048
     Dates: start: 20080201
  3. KIVEXA [Concomitant]
  4. EPREX [Concomitant]

REACTIONS (3)
  - DRUG INTERACTION [None]
  - HAEMORRHAGIC STROKE [None]
  - OVERDOSE [None]
